FAERS Safety Report 5222702-X (Version None)
Quarter: 2007Q1

REPORT INFORMATION
  Report Type: 
  Country: None (occurrence: None)
  Receive Date: 20070129
  Receipt Date: 20060126
  Transmission Date: 20070707
  Serious: No
  Sender: FDA-Public Use
  Company Number: US-GLAXOSMITHKLINE-A0591125A

PATIENT
  Sex: Male

DRUGS (4)
  1. COMBIVIR [Suspect]
     Indication: HIV INFECTION
     Route: 048
     Dates: end: 20040301
  2. ZIAGEN [Suspect]
     Indication: HIV INFECTION
     Route: 048
     Dates: start: 20040301
  3. KALETRA [Suspect]
     Route: 065
     Dates: start: 20040301
  4. VIREAD [Suspect]
     Dates: start: 20040301

REACTIONS (1)
  - SKIN HYPERPIGMENTATION [None]
